FAERS Safety Report 8956717 (Version 1)
Quarter: 2012Q4

REPORT INFORMATION
  Report Type: 
  Country: GB (occurrence: None)
  Receive Date: 20121128
  Receipt Date: 20121128
  Transmission Date: 20130627
  Serious: Yes (Hospitalization)
  Sender: FDA-Public Use
  Company Number: 2012ST000138

PATIENT
  Age: 73 Year
  Sex: Female

DRUGS (4)
  1. OMEPRAZOLE (OMEPRAZOLE) [Suspect]
     Indication: GASTROESOPHAGEAL REFLUX DISEASE
     Route: 048
  2. LANSOPRAZOLE [Concomitant]
  3. BENDROFLUMETHIAZIDE [Concomitant]
  4. FUROSEMIDE [Concomitant]

REACTIONS (13)
  - Chest pain [None]
  - Abdominal pain [None]
  - Hypomagnesaemia [None]
  - Hypocalcaemia [None]
  - Arthralgia [None]
  - Fall [None]
  - Tetany [None]
  - Paraesthesia [None]
  - Lethargy [None]
  - Balance disorder [None]
  - Diarrhoea [None]
  - Dyspepsia [None]
  - Rash pruritic [None]
